FAERS Safety Report 8539770-X (Version None)
Quarter: 2012Q3

REPORT INFORMATION
  Report Type: 
  Country: None (occurrence: None)
  Receive Date: 20120726
  Receipt Date: 20120713
  Transmission Date: 20120928
  Serious: No
  Sender: FDA-Public Use
  Company Number: US-ASTRAZENECA-2012SE48914

PATIENT
  Age: 59 Year
  Sex: Female
  Weight: 64.4 kg

DRUGS (3)
  1. LORAZEMPAM [Concomitant]
  2. NEXIUM [Suspect]
     Indication: GASTRIC ULCER
     Route: 048
  3. NEXIUM [Suspect]
     Indication: GASTROOESOPHAGEAL REFLUX DISEASE
     Route: 048

REACTIONS (2)
  - SKIN ULCER [None]
  - DRUG INEFFECTIVE [None]
